FAERS Safety Report 7729632-X (Version None)
Quarter: 2011Q3

REPORT INFORMATION
  Report Type: 
  Country: None (occurrence: None)
  Receive Date: 20110906
  Receipt Date: 20110826
  Transmission Date: 20111222
  Serious: Yes (Death)
  Sender: FDA-Public Use
  Company Number: ES-ELI_LILLY_AND_COMPANY-ES201108008297

PATIENT
  Sex: Male
  Weight: 80 kg

DRUGS (2)
  1. FORTEO [Suspect]
     Indication: OSTEOPOROSIS
     Dosage: 20 UG, QD
     Route: 058
     Dates: start: 20091001, end: 20110615
  2. BUTO-ASMA [Concomitant]
     Indication: LUNG DISORDER
     Dosage: UNK, PRN

REACTIONS (1)
  - DEATH [None]
